FAERS Safety Report 17575104 (Version 1)
Quarter: 2020Q1

REPORT INFORMATION
  Report Type: Report from Study
  Country: BE (occurrence: BE)
  Receive Date: 20200324
  Receipt Date: 20200324
  Transmission Date: 20200409
  Serious: Yes (Other)
  Sender: FDA-Public Use
  Company Number: BE-ROCHE-2567080

PATIENT

DRUGS (4)
  1. SIMEPREVIR [Concomitant]
     Active Substance: SIMEPREVIR
  2. RIBAVIRIN. [Suspect]
     Active Substance: RIBAVIRIN
     Indication: HEPATITIS C
     Route: 065
  3. SOFOSBUVIR [Suspect]
     Active Substance: SOFOSBUVIR
     Indication: HEPATITIS C
     Route: 065
  4. DACLATASVIR. [Suspect]
     Active Substance: DACLATASVIR
     Indication: HEPATITIS C
     Route: 065

REACTIONS (20)
  - Breast cancer [Unknown]
  - Hepatobiliary cancer [Unknown]
  - Fatigue [Unknown]
  - Infection [Unknown]
  - Coronary artery disease [Unknown]
  - Injury [Unknown]
  - Non-Hodgkin^s lymphoma [Unknown]
  - Electrolyte imbalance [Unknown]
  - Respiratory disorder [Unknown]
  - Hepatobiliary disease [Unknown]
  - Renal disorder [Unknown]
  - Anaemia [Unknown]
  - Headache [Unknown]
  - Schizophrenia [Unknown]
  - Gastrointestinal haemorrhage [Unknown]
  - Encephalopathy [Unknown]
  - Leukaemia [Unknown]
  - Connective tissue disorder [Unknown]
  - Bacterial infection [Unknown]
  - Viral infection [Unknown]
